FAERS Safety Report 14084130 (Version 2)
Quarter: 2017Q4

REPORT INFORMATION
  Report Type: Spontaneous
  Country: IT (occurrence: IT)
  Receive Date: 20171013
  Receipt Date: 20171031
  Transmission Date: 20180321
  Serious: Yes (Other)
  Sender: FDA-Public Use
  Company Number: IT-CIPLA LTD.-2017IT17865

PATIENT

DRUGS (8)
  1. CISPLATIN. [Suspect]
     Active Substance: CISPLATIN
     Indication: CHOLANGIOCARCINOMA
     Dosage: 25 MG/M2, ON DAYS 1 AND 8 EVERY 3 WEEKS
     Route: 065
     Dates: start: 20151127, end: 201601
  2. GEMCITABINE [Suspect]
     Active Substance: GEMCITABINE\GEMCITABINE HYDROCHLORIDE
     Indication: CHOLANGIOCARCINOMA
     Dosage: 1000 MG/M2, UNK, ON DAYS 1 AND 8 EVERY 3 WEEKS
     Route: 065
     Dates: start: 20151127, end: 201601
  3. CISPLATIN. [Suspect]
     Active Substance: CISPLATIN
     Dosage: UNK, 3 COURSES
     Route: 065
  4. CISPLATIN. [Suspect]
     Active Substance: CISPLATIN
     Dosage: UNK, DOSES REDUCED BY 10%
     Route: 065
  5. GEMCITABINE [Suspect]
     Active Substance: GEMCITABINE\GEMCITABINE HYDROCHLORIDE
     Dosage: UNK, DOSES REDUCED BY 10%
     Route: 065
  6. GEMCITABINE [Suspect]
     Active Substance: GEMCITABINE\GEMCITABINE HYDROCHLORIDE
     Dosage: UNK, DOSES REDUCED BY 20%
     Route: 065
  7. GEMCITABINE [Suspect]
     Active Substance: GEMCITABINE\GEMCITABINE HYDROCHLORIDE
     Dosage: 1000 MG/M2, UNK, ON DAYS 1, 8, AND 15 EVERY 4 WEEKS, MAINTENANCE THERAPY
     Dates: start: 201604
  8. GEMCITABINE [Suspect]
     Active Substance: GEMCITABINE\GEMCITABINE HYDROCHLORIDE
     Dosage: UNK, 3 COURSES
     Route: 065

REACTIONS (6)
  - Disease progression [Unknown]
  - Nausea [Recovered/Resolved]
  - Thrombocytopenia [Unknown]
  - Lymphoedema [Unknown]
  - Vomiting [Recovered/Resolved]
  - Constipation [Unknown]
